FAERS Safety Report 5647483-7 (Version None)
Quarter: 2008Q1

REPORT INFORMATION
  Report Type: 
  Country: None (occurrence: None)
  Receive Date: 20080303
  Receipt Date: 20080109
  Transmission Date: 20080703
  Serious: No
  Sender: FDA-Public Use
  Company Number: US-BAYER-200810830NA

PATIENT
  Age: 52 Year
  Sex: Male

DRUGS (3)
  1. CIPRO [Suspect]
     Indication: PHARYNGITIS
     Route: 048
     Dates: start: 20070720
  2. LEXAPRO [Concomitant]
  3. DIAZEPAM [Concomitant]

REACTIONS (5)
  - ANXIETY [None]
  - BRAIN COMPRESSION [None]
  - FORMICATION [None]
  - MENTAL DISORDER [None]
  - PALPITATIONS [None]
